FAERS Safety Report 4470107-1 (Version None)
Quarter: 2004Q3

REPORT INFORMATION
  Report Type: 
  Country: None (occurrence: None)
  Receive Date: 20040910
  Receipt Date: 20040708
  Transmission Date: 20050211
  Serious: No
  Sender: FDA-Public Use
  Company Number: 2004222931US

PATIENT
  Age: 70 Year
  Sex: Male

DRUGS (1)
  1. BEXTRA [Suspect]
     Indication: SPONDYLITIS
     Dosage: 10 MG, QD
     Dates: start: 20040601

REACTIONS (4)
  - CHEST DISCOMFORT [None]
  - COUGH [None]
  - DYSPNOEA [None]
  - WHEEZING [None]
